FAERS Safety Report 15791701 (Version 4)
Quarter: 2019Q2

REPORT INFORMATION
  Report Type: Spontaneous
  Country: FR (occurrence: FR)
  Receive Date: 20190105
  Receipt Date: 20190613
  Transmission Date: 20190711
  Serious: Yes (Death, Life-Threatening, Hospitalization, Other)
  Sender: FDA-Public Use
  Company Number: FR-ACCORD-099590

PATIENT
  Age: 62 Year
  Sex: Male
  Weight: 136 kg

DRUGS (9)
  1. METHOTREXATE. [Suspect]
     Active Substance: METHOTREXATE
     Indication: HYPERSENSITIVITY PNEUMONITIS
     Route: 065
     Dates: start: 201305, end: 201311
  2. METFORMIN [Concomitant]
     Active Substance: METFORMIN HYDROCHLORIDE
     Indication: DIABETES MELLITUS
  3. TETRAZEPAM [Concomitant]
     Active Substance: TETRAZEPAM
  4. PERINDOPRIL/PERINDOPRIL ERBUMINE [Concomitant]
  5. BISOPROLOL [Concomitant]
     Active Substance: BISOPROLOL
  6. PARACETAMOL/TRAMADOL HYDROCHLORIDE [Concomitant]
  7. ALPRAZOLAM. [Concomitant]
     Active Substance: ALPRAZOLAM
  8. FLUINDIONE [Concomitant]
     Active Substance: FLUINDIONE
  9. ZOPICLONE [Concomitant]
     Active Substance: ZOPICLONE

REACTIONS (3)
  - Abscess bacterial [Fatal]
  - Off label use [Unknown]
  - Mycobacterium avium complex infection [Fatal]

NARRATIVE: CASE EVENT DATE: 201311
